FAERS Safety Report 6576069-5 (Version None)
Quarter: 2010Q1

REPORT INFORMATION
  Report Type: 
  Country: None (occurrence: None)
  Receive Date: 20100209
  Receipt Date: 20100128
  Transmission Date: 20100710
  Serious: Yes (Hospitalization, Other)
  Sender: FDA-Public Use
  Company Number: PHEH2008US08415

PATIENT
  Sex: Male
  Weight: 131.52 kg

DRUGS (26)
  1. ZELNORM [Suspect]
     Dosage: 6 MG, BID
     Route: 048
     Dates: start: 20060504, end: 20071023
  2. FLUVASTATIN [Concomitant]
     Dosage: 20MG
     Route: 048
     Dates: start: 20081126
  3. PLAVIX [Concomitant]
     Dosage: 75MG QD
     Route: 048
     Dates: start: 20081126
  4. COENZYME A [Concomitant]
     Dosage: UNK
     Route: 048
     Dates: start: 20081126
  5. OMEPRAZOLE [Concomitant]
     Dosage: 40MG
     Route: 048
     Dates: start: 20081126
  6. DARVOCET-N 100 [Concomitant]
     Dosage: Q5HRS PRN PAIN
     Route: 048
     Dates: start: 20081126
  7. ASPIRIN [Concomitant]
     Dosage: 325MG QD
     Route: 048
  8. WELCHOL [Concomitant]
     Dosage: 3 TABS BID
     Route: 048
  9. ZETIA [Concomitant]
     Dosage: 10MG QD
     Route: 048
  10. LISINOPRIL [Concomitant]
     Dosage: 20MG QD
     Route: 048
  11. COLCHICINE [Concomitant]
     Dosage: 0.6 QD
     Route: 048
  12. NITROGLYCERIN [Concomitant]
     Dosage: 1 TAB SL Q5 MIN PRN CHEAST PAIN
     Route: 060
  13. NEXIUM [Concomitant]
     Dosage: 40MG QD
     Route: 048
  14. MIRALAX [Concomitant]
     Dosage: UNK
     Route: 048
  15. CLOPIDOGREL [Concomitant]
     Dosage: 75MG QD
     Route: 048
  16. TOPROL-XL [Concomitant]
     Dosage: 50MG QD
     Route: 048
  17. IMDUR [Concomitant]
     Dosage: 120MG QD
     Route: 048
  18. MAVIK [Concomitant]
     Dosage: 3MG QD
     Route: 048
  19. FOLIC ACID [Concomitant]
     Dosage: 1MG QD
     Route: 048
  20. BENTYL [Concomitant]
     Dosage: 10MG QD
     Route: 048
     Dates: start: 20070322
  21. TEGASEROD [Concomitant]
     Dosage: 6MG BID
     Route: 048
     Dates: start: 20060914
  22. ROSUVASTATIN [Concomitant]
     Dosage: 5MG QD PM
     Route: 048
     Dates: start: 20060914
  23. LANSOPRAZOLE [Concomitant]
     Dosage: 30MG QD
     Route: 048
     Dates: start: 20060914
  24. METOPROLOL TARTRATE [Concomitant]
     Dosage: 12.5MG BID
     Route: 048
     Dates: start: 20060914
  25. ISOSORBIDE MONONITRATE [Concomitant]
     Dosage: 120MG QD
     Route: 048
     Dates: start: 20060914
  26. LOVASTATIN [Concomitant]
     Dosage: 20MG QD
     Route: 048

REACTIONS (22)
  - ABDOMINAL DISTENSION [None]
  - ABDOMINAL PAIN [None]
  - ACUTE MYOCARDIAL INFARCTION [None]
  - ATRIAL FIBRILLATION [None]
  - CATHETERISATION CARDIAC [None]
  - CHEST DISCOMFORT [None]
  - CHEST PAIN [None]
  - COLON ADENOMA [None]
  - COLONIC POLYP [None]
  - CONSTIPATION [None]
  - CORONARY ARTERY OCCLUSION [None]
  - DIVERTICULUM [None]
  - DIZZINESS [None]
  - DYSPNOEA [None]
  - EMOTIONAL DISORDER [None]
  - GASTRITIS EROSIVE [None]
  - HAEMORRHOIDS [None]
  - HYPERHIDROSIS [None]
  - INJURY [None]
  - PRURITUS [None]
  - RASH MACULAR [None]
  - REFLUX GASTRITIS [None]
